FAERS Safety Report 10870093 (Version 1)
Quarter: 2015Q1

REPORT INFORMATION
  Report Type: Spontaneous
  Country: CN (occurrence: CN)
  Receive Date: 20150226
  Receipt Date: 20150226
  Transmission Date: 20150721
  Serious: Yes (Death, Other)
  Sender: FDA-Public Use
  Company Number: CN-BAYER-2015-026987

PATIENT
  Age: 64 Year
  Sex: Male

DRUGS (2)
  1. SORAFENIB (RAF KINASE INHIBITOR) [Suspect]
     Active Substance: SORAFENIB
     Indication: HEPATIC CANCER METASTATIC
     Dosage: 40 MG, BID
     Route: 048
     Dates: start: 20140104, end: 20140308
  2. MORPHINE HYDROCHLORIDE [Concomitant]
     Active Substance: MORPHINE HYDROCHLORIDE
     Indication: PAIN
     Dosage: 90 MG, BID
     Route: 048

REACTIONS (9)
  - Hepatocellular carcinoma [Fatal]
  - Fatigue [None]
  - Vomiting [None]
  - Hyperhidrosis [None]
  - Rash [None]
  - Decreased appetite [None]
  - Stomatitis [None]
  - Blood pressure increased [None]
  - Drug resistance [Fatal]
